FAERS Safety Report 7049768-9 (Version None)
Quarter: 2010Q4

REPORT INFORMATION
  Report Type: 
  Country: None (occurrence: None)
  Receive Date: 20101018
  Receipt Date: 20101012
  Transmission Date: 20110411
  Serious: Yes (Hospitalization)
  Sender: FDA-Public Use
  Company Number: US-BAYER-201021640BCC

PATIENT
  Age: 49 Year
  Sex: Male
  Weight: 120 kg

DRUGS (4)
  1. ASPIRIN [Suspect]
     Indication: PRODUCT USED FOR UNKNOWN INDICATION
     Dosage: TOTAL DAILY DOSE: 2 DF
     Route: 048
     Dates: start: 20101007, end: 20101007
  2. ATENOLOL [Concomitant]
     Dates: end: 20100901
  3. ADIPEX [Concomitant]
     Dates: start: 20100901
  4. HYDROCODONE [Concomitant]
     Dates: end: 20100801

REACTIONS (4)
  - AFFECT LABILITY [None]
  - FEELING DRUNK [None]
  - NAUSEA [None]
  - NERVOUSNESS [None]
